FAERS Safety Report 9342582 (Version 2)
Quarter: 2013Q3

REPORT INFORMATION
  Report Type: Report from Study
  Country: BR (occurrence: BR)
  Receive Date: 20130611
  Receipt Date: 20130814
  Transmission Date: 20140515
  Serious: Yes (Hospitalization, Other)
  Sender: FDA-Public Use
  Company Number: PHHY2013BR058596

PATIENT
  Sex: Female

DRUGS (10)
  1. DIOVAN [Suspect]
     Indication: HYPERTENSION
     Dosage: 1 DF, (320 MG) DAILY
     Route: 048
     Dates: start: 20130123, end: 201301
  2. LOSARTAN [Suspect]
     Indication: HYPERTENSION
     Dosage: 50 MG, BID, DAILY
  3. DIAZEPAM [Suspect]
     Indication: ANXIETY
     Dosage: UNK UKN, UNK
  4. FENOFIBRATE [Concomitant]
     Indication: DYSGEUSIA
     Dosage: 1 DF, DAILY
     Route: 048
  5. FENOFIBRATE [Concomitant]
     Indication: HEPATIC STEATOSIS
  6. LEVOTHYROXINE [Concomitant]
     Indication: THYROID DISORDER
     Dosage: 1 DF, DAILY
     Route: 048
  7. OMEPRAZOLE [Concomitant]
     Indication: ABDOMINAL PAIN UPPER
     Dosage: 1 DF, (20 MG) DAILY
     Route: 048
  8. OMEPRAZOLE [Concomitant]
     Indication: GASTRITIS
  9. GABAPENTIN [Concomitant]
     Indication: PAIN IN EXTREMITY
     Dosage: 1 DF, (300 MG) DAILY
     Route: 048
  10. GABAPENTIN [Concomitant]
     Indication: ANXIETY

REACTIONS (6)
  - Post procedural swelling [Recovering/Resolving]
  - Feeling abnormal [Unknown]
  - Hypertension [Unknown]
  - Skin irritation [Recovered/Resolved]
  - Procedural pain [Unknown]
  - Obesity [Not Recovered/Not Resolved]
